FAERS Safety Report 6526800-X (Version None)
Quarter: 2010Q1

REPORT INFORMATION
  Report Type: 
  Country: None (occurrence: None)
  Receive Date: 20100104
  Receipt Date: 20100104
  Transmission Date: 20100710
  Serious: No
  Sender: FDA-Public Use
  Company Number: None

PATIENT
  Sex: Female

DRUGS (1)
  1. ADVAIR DISKUS 100/50 [Suspect]
     Indication: ASTHMA
     Dates: start: 20091218

REACTIONS (4)
  - ERYTHEMA [None]
  - PHARYNGEAL OEDEMA [None]
  - THROAT IRRITATION [None]
  - URTICARIA [None]
